FAERS Safety Report 12066887 (Version 2)
Quarter: 2016Q1

REPORT INFORMATION
  Report Type: Spontaneous
  Country: IT (occurrence: IT)
  Receive Date: 20160211
  Receipt Date: 20160212
  Transmission Date: 20160526
  Serious: Yes (Other)
  Sender: FDA-Public Use
  Company Number: IT-TEVA-631983ACC

PATIENT
  Age: 51 Year
  Sex: Female
  Weight: 88 kg

DRUGS (3)
  1. CARBOPLATINO TEVA - 5 ML 10 MG/ML - TEVA PHARMA B.V. [Suspect]
     Active Substance: CARBOPLATIN
     Indication: OVARIAN NEOPLASM
     Route: 041
     Dates: start: 20160127, end: 20160127
  2. GRANISETRON HYDROCHLORIDE. [Concomitant]
     Active Substance: GRANISETRON HYDROCHLORIDE
     Indication: PRODUCT USED FOR UNKNOWN INDICATION
     Route: 041
     Dates: start: 20160127, end: 20160127
  3. DESAMETHASONE [Concomitant]
     Active Substance: DEXAMETHASONE
     Indication: PRODUCT USED FOR UNKNOWN INDICATION
     Route: 041
     Dates: start: 20160127, end: 20160127

REACTIONS (7)
  - Hypotension [Recovered/Resolved]
  - Suffocation feeling [Recovered/Resolved]
  - Loss of consciousness [Recovered/Resolved]
  - Pruritus [Recovered/Resolved]
  - Respiratory arrest [Recovered/Resolved]
  - Hyperhidrosis [Recovered/Resolved]
  - Vomiting projectile [Recovered/Resolved]

NARRATIVE: CASE EVENT DATE: 20160127
